FAERS Safety Report 23178747 (Version 1)
Quarter: 2023Q4

REPORT INFORMATION
  Report Type: Spontaneous
  Country: ES (occurrence: ES)
  Receive Date: 20231113
  Receipt Date: 20231113
  Transmission Date: 20240110
  Serious: Yes (Other)
  Sender: FDA-Public Use
  Company Number: ES-ROCHE-2796003

PATIENT
  Age: 64 Year
  Sex: Female

DRUGS (6)
  1. DEXAMETHASONE [Suspect]
     Active Substance: DEXAMETHASONE
     Indication: Acquired Von Willebrand^s disease
     Route: 065
  2. DEXAMETHASONE [Suspect]
     Active Substance: DEXAMETHASONE
     Indication: Waldenstrom^s macroglobulinaemia
  3. BORTEZOMIB [Suspect]
     Active Substance: BORTEZOMIB
     Indication: Von Willebrand^s disease
     Route: 065
  4. BORTEZOMIB [Suspect]
     Active Substance: BORTEZOMIB
     Indication: Waldenstrom^s macroglobulinaemia
  5. RITUXIMAB [Suspect]
     Active Substance: RITUXIMAB
     Indication: Von Willebrand^s disease
     Route: 065
  6. RITUXIMAB [Suspect]
     Active Substance: RITUXIMAB
     Indication: Waldenstrom^s macroglobulinaemia

REACTIONS (2)
  - Abdominal wall haematoma [Unknown]
  - Constipation [Unknown]
